FAERS Safety Report 7300043-4 (Version None)
Quarter: 2011Q1

REPORT INFORMATION
  Report Type: 
  Country: None (occurrence: None)
  Receive Date: 20110217
  Receipt Date: 20110203
  Transmission Date: 20110831
  Serious: Yes (Hospitalization, Other)
  Sender: FDA-Public Use
  Company Number: JP-CELGENEUS-087-21880-10112248

PATIENT
  Sex: Female

DRUGS (30)
  1. LENADEX [Suspect]
     Route: 048
     Dates: start: 20101019, end: 20101022
  2. NEO MINOPHAGEN [Concomitant]
     Indication: PROPHYLAXIS
     Route: 041
     Dates: start: 20101118, end: 20101118
  3. NEO MINOPHAGEN [Concomitant]
     Route: 041
     Dates: start: 20101216, end: 20101216
  4. NEO MINOPHAGEN [Concomitant]
     Route: 041
     Dates: start: 20101206, end: 20101206
  5. LENADEX [Suspect]
     Route: 048
     Dates: start: 20101026, end: 20101029
  6. ASPIRIN [Concomitant]
     Indication: PROPHYLAXIS
     Route: 048
     Dates: start: 20101012, end: 20101021
  7. NEO MINOPHAGEN [Concomitant]
     Route: 041
     Dates: start: 20101224, end: 20101224
  8. NEO MINOPHAGEN [Concomitant]
     Route: 041
     Dates: start: 20101229, end: 20101229
  9. NEO MINOPHAGEN [Concomitant]
     Route: 041
     Dates: start: 20110107, end: 20110107
  10. NOVAMIN [Concomitant]
     Indication: DISEASE COMPLICATION
     Route: 048
     Dates: start: 20101012
  11. DIAZEPAM [Concomitant]
     Route: 048
     Dates: start: 20101019, end: 20101026
  12. CEREKINON [Concomitant]
     Route: 048
     Dates: start: 20101126, end: 20101202
  13. NEO MINOPHAGEN [Concomitant]
     Route: 041
     Dates: start: 20101213, end: 20101213
  14. LENADEX [Suspect]
     Indication: MULTIPLE MYELOMA
     Route: 048
     Dates: start: 20101012, end: 20101015
  15. LENADEX [Suspect]
     Route: 048
     Dates: start: 20101109, end: 20101126
  16. PARIET [Concomitant]
     Indication: PROPHYLAXIS
     Route: 048
     Dates: start: 20101012
  17. NEO MINOPHAGEN [Concomitant]
     Route: 041
     Dates: start: 20101210, end: 20101210
  18. REVLIMID [Suspect]
     Indication: MULTIPLE MYELOMA
     Route: 048
     Dates: start: 20101012, end: 20101101
  19. REVLIMID [Suspect]
     Route: 048
     Dates: start: 20101120, end: 20101127
  20. LENADEX [Suspect]
     Route: 048
     Dates: start: 20101207, end: 20101226
  21. BIOFERMIN R [Concomitant]
     Indication: DISEASE COMPLICATION
     Route: 048
     Dates: start: 20101012
  22. GOSHA-JINKI-GAN [Concomitant]
     Dosage: 3 PAKCETS
     Route: 048
     Dates: start: 20101012
  23. NEO MINOPHAGEN [Concomitant]
     Route: 041
     Dates: start: 20101227, end: 20101227
  24. NEO MINOPHAGEN [Concomitant]
     Route: 041
     Dates: start: 20101231, end: 20101231
  25. REVLIMID [Suspect]
     Route: 048
     Dates: start: 20101109, end: 20101112
  26. OXYCONTIN [Concomitant]
     Route: 048
     Dates: start: 20101006
  27. REVLIMID [Suspect]
     Route: 048
     Dates: start: 20101217, end: 20101227
  28. URSO 250 [Concomitant]
     Indication: DISEASE COMPLICATION
     Route: 048
     Dates: start: 20101012, end: 20101025
  29. BAKTAR [Concomitant]
     Indication: PROPHYLAXIS
     Route: 048
     Dates: start: 20101012
  30. NEO MINOPHAGEN [Concomitant]
     Route: 041
     Dates: start: 20101223, end: 20101223

REACTIONS (6)
  - NEUTROPHIL COUNT DECREASED [None]
  - RASH [None]
  - UPPER RESPIRATORY TRACT INFLAMMATION [None]
  - NEUTROPENIA [None]
  - THROMBOCYTOPENIA [None]
  - PLATELET COUNT DECREASED [None]
